FAERS Safety Report 5792112-5 (Version None)
Quarter: 2008Q2

REPORT INFORMATION
  Report Type: 
  Country: None (occurrence: None)
  Receive Date: 20080626
  Receipt Date: 20080318
  Transmission Date: 20081010
  Serious: No
  Sender: FDA-Public Use
  Company Number: US-ASTRAZENECA-2008UW05461

PATIENT
  Age: 65 Year
  Sex: Female
  Weight: 63.5 kg

DRUGS (5)
  1. PULMICORT FLEXHALER [Suspect]
     Indication: ASTHMA
     Route: 055
     Dates: start: 20080301
  2. SINGULAIR [Concomitant]
  3. NASACORT [Concomitant]
  4. ACIPHEX [Concomitant]
  5. ALBUTEROL [Concomitant]

REACTIONS (4)
  - DYSPNOEA [None]
  - LUNG DISORDER [None]
  - NASAL CONGESTION [None]
  - SENSATION OF FOREIGN BODY [None]
